FAERS Safety Report 10062683 (Version 1)
Quarter: 2014Q1

REPORT INFORMATION
  Report Type: Spontaneous
  Country: US (occurrence: None)
  Receive Date: 20140313
  Receipt Date: 20140313
  Transmission Date: 20141002
  Serious: No
  Sender: FDA-Public Use
  Company Number: 1000050777

PATIENT
  Age: 77 Year
  Sex: Male

DRUGS (6)
  1. DALIRESP (ROFLUMILAST) (500 MICROGRAM, TABLETS) [Suspect]
     Indication: CHRONIC OBSTRUCTIVE PULMONARY DISEASE
     Route: 048
     Dates: start: 201310, end: 20131101
  2. RAMIPRIL [Concomitant]
  3. CRESTOR (ROSUVASTATIN CALCIUM) [Concomitant]
  4. CLARITIN (LORATADINE) [Concomitant]
  5. ALLOPURINOL [Concomitant]
  6. MUCINEX [Concomitant]

REACTIONS (5)
  - Anxiety [None]
  - Weight decreased [None]
  - Dizziness [None]
  - Insomnia [None]
  - Decreased appetite [None]
